FAERS Safety Report 5042865-9 (Version None)
Quarter: 2006Q3

REPORT INFORMATION
  Report Type: 
  Country: None (occurrence: None)
  Receive Date: 20060705
  Receipt Date: 20060614
  Transmission Date: 20061208
  Serious: Yes (Death)
  Sender: FDA-Public Use
  Company Number: JP-JPN-A200602054

PATIENT
  Age: 64 Year
  Sex: Female

DRUGS (9)
  1. PAXIL [Suspect]
     Indication: DEPRESSION POSTMENOPAUSAL
     Dosage: 10MG PER DAY
     Route: 048
     Dates: start: 20030205, end: 20060527
  2. DEPROMEL [Suspect]
     Indication: DEPRESSION POSTMENOPAUSAL
     Route: 048
     Dates: start: 20030205, end: 20060527
  3. LIMAS [Concomitant]
     Indication: DEPRESSION POSTMENOPAUSAL
     Dosage: 400MG PER DAY
     Route: 048
     Dates: start: 20030122, end: 20030205
  4. METLIGINE [Concomitant]
     Indication: HYPERTENSION
     Dosage: 4MG PER DAY
     Route: 048
     Dates: start: 20030205, end: 20060527
  5. GRAMALIL [Concomitant]
     Indication: DEPRESSION POSTMENOPAUSAL
     Dosage: 50MG PER DAY
     Route: 048
     Dates: start: 20030205, end: 20060527
  6. LORAZEPAM [Concomitant]
     Indication: DEPRESSION POSTMENOPAUSAL
     Dosage: 2MG PER DAY
     Route: 048
     Dates: start: 20030205, end: 20060527
  7. DEPAS [Concomitant]
     Indication: DEPRESSION POSTMENOPAUSAL
     Dosage: 1MG PER DAY
     Route: 048
     Dates: start: 20030205, end: 20060527
  8. FORSENID [Concomitant]
     Indication: CONSTIPATION
     Dosage: 2U PER DAY
     Route: 048
     Dates: start: 20030205, end: 20060527
  9. LENDORMIN [Concomitant]
     Dosage: .25MG PER DAY
     Route: 048
     Dates: start: 20030122, end: 20030205

REACTIONS (1)
  - COMPLETED SUICIDE [None]
